FAERS Safety Report 5140259-9 (Version None)
Quarter: 2006Q4

REPORT INFORMATION
  Report Type: 
  Country: None (occurrence: None)
  Receive Date: 20061026
  Receipt Date: 20061026
  Transmission Date: 20070319
  Serious: Yes (Other)
  Sender: FDA-Public Use
  Company Number: None

PATIENT
  Age: 63 Year
  Sex: Male
  Weight: 56.6996 kg

DRUGS (1)
  1. CETUXIMAB 2MG/ML 50ML VIAL [Suspect]
     Indication: RECTAL CANCER
     Dosage: 670 MG ONCE IV 1 DOSE
     Route: 042
     Dates: start: 20060928, end: 20060928

REACTIONS (5)
  - CARDIO-RESPIRATORY ARREST [None]
  - DIZZINESS [None]
  - PRURITUS [None]
  - SINUS TACHYCARDIA [None]
  - UNRESPONSIVE TO STIMULI [None]
